FAERS Safety Report 8764387 (Version 2)
Quarter: 2012Q4

REPORT INFORMATION
  Report Type: 
  Country: FR (occurrence: FR)
  Receive Date: 20120831
  Receipt Date: 20120925
  Transmission Date: 20130627
  Serious: Yes (Life-Threatening, Hospitalization, Disabling)
  Sender: FDA-Public Use
  Company Number: PHHY2012FR075453

PATIENT
  Sex: Male
  Weight: 98 kg

DRUGS (4)
  1. LEPONEX [Suspect]
     Indication: PSYCHOTIC DISORDER
     Dosage: 1 DF, QD
     Route: 048
     Dates: start: 20120405, end: 20120406
  2. QUETIAPINE [Suspect]
     Indication: PSYCHOTIC DISORDER
     Dosage: 800 mg, QD
     Route: 048
     Dates: start: 201203, end: 20120406
  3. CLOPIXOL [Suspect]
     Indication: PSYCHOTIC DISORDER
     Dosage: 1 DF, UNK
     Route: 030
     Dates: start: 20120403
  4. DEPAKOTE [Concomitant]
     Indication: AFFECTIVE DISORDER
     Dosage: 1000 mg, daily
     Route: 048
     Dates: start: 2011, end: 20120406

REACTIONS (8)
  - Septic shock [Recovered/Resolved with Sequelae]
  - Pyrexia [Unknown]
  - Abdominal pain [Unknown]
  - Colitis ischaemic [Recovered/Resolved with Sequelae]
  - Intestinal infarction [Unknown]
  - Altered state of consciousness [Unknown]
  - Constipation [Unknown]
  - Insomnia [Unknown]
